FAERS Safety Report 20444970 (Version 2)
Quarter: 2022Q2

REPORT INFORMATION
  Report Type: Other
  Country: US (occurrence: None)
  Receive Date: 20220208
  Receipt Date: 20220408
  Transmission Date: 20220721
  Serious: Yes (Hospitalization)
  Sender: FDA-Public Use
  Company Number: US-ROCHE-3012941

PATIENT
  Sex: Female

DRUGS (1)
  1. OCREVUS [Suspect]
     Active Substance: OCRELIZUMAB
     Indication: Multiple sclerosis
     Dosage: THAN 600 MG EVERY 6 MONTHS: DOT: 04/DEC/2019, 04/DEC/2020,03/JUN/2020, 30/DEC/2020,30/JUN/2021
     Route: 065
     Dates: start: 20191204

REACTIONS (1)
  - COVID-19 [Recovered/Resolved]
